FAERS Safety Report 14405285 (Version 1)
Quarter: 2018Q1

REPORT INFORMATION
  Report Type: Spontaneous
  Country: US (occurrence: US)
  Receive Date: 20180118
  Receipt Date: 20180118
  Transmission Date: 20180509
  Serious: Yes (Death, Other)
  Sender: FDA-Public Use
  Company Number: US-ASTELLAS-2018US002666

PATIENT
  Age: 46 Year
  Sex: Female

DRUGS (2)
  1. AMBISOME [Suspect]
     Active Substance: AMPHOTERICIN B
     Indication: MUCORMYCOSIS
     Route: 033
  2. POLYMETHYLMETHACRYLATE (DEVICE) [Suspect]
     Active Substance: DEVICE
     Indication: MUCORMYCOSIS
     Dosage: UNK UNK, UNKNOWN FREQ.
     Route: 033

REACTIONS (5)
  - Mucormycosis [None]
  - Drug ineffective [Fatal]
  - Infection in an immunocompromised host [None]
  - Off label use [Fatal]
  - Hepatic function abnormal [None]
